FAERS Safety Report 16262595 (Version 1)
Quarter: 2019Q2

REPORT INFORMATION
  Report Type: Report from Study
  Country: DE (occurrence: DE)
  Receive Date: 20190502
  Receipt Date: 20190502
  Transmission Date: 20190711
  Serious: Yes (Other)
  Sender: FDA-Public Use
  Company Number: DE-AMGEN-DEUSL2019066145

PATIENT
  Age: 76 Year
  Sex: Female

DRUGS (1)
  1. AMGEVITA [Suspect]
     Active Substance: ADALIMUMAB
     Indication: ANKYLOSING SPONDYLITIS
     Dosage: 40 MILLIGRAM, Q2WK
     Route: 065

REACTIONS (7)
  - Angina pectoris [Unknown]
  - Headache [Unknown]
  - Arthropathy [Unknown]
  - Vertigo [Unknown]
  - Dyspnoea [Unknown]
  - Dry mouth [Unknown]
  - Asthenia [Unknown]
